FAERS Safety Report 5482434-X (Version None)
Quarter: 2007Q4

REPORT INFORMATION
  Report Type: 
  Country: None (occurrence: None)
  Receive Date: 20071011
  Receipt Date: 20070920
  Transmission Date: 20080405
  Serious: Yes (Other)
  Sender: FDA-Public Use
  Company Number: DE-ROCHE-300163

PATIENT
  Age: 17 Year
  Sex: Male

DRUGS (2)
  1. ROACCUTAN [Suspect]
     Indication: ACNE
     Route: 048
     Dates: start: 20010716, end: 20010818
  2. ROACCUTAN [Suspect]
     Route: 048
     Dates: start: 20010615, end: 20010715

REACTIONS (6)
  - ANXIETY [None]
  - DYSPNOEA [None]
  - RHINITIS ALLERGIC [None]
  - SLEEP DISORDER [None]
  - SUICIDAL IDEATION [None]
  - TACHYCARDIA [None]
